FAERS Safety Report 25263926 (Version 1)
Quarter: 2025Q2

REPORT INFORMATION
  Report Type: Spontaneous
  Country: US (occurrence: None)
  Receive Date: 20250501
  Receipt Date: 20250501
  Transmission Date: 20250717
  Serious: Yes (Life-Threatening, Hospitalization, Other)
  Sender: FDA-CTU
  Company Number: None

PATIENT
  Age: 47 Year
  Sex: Female
  Weight: 90.9 kg

DRUGS (3)
  1. WIXELA INHUB [Suspect]
     Active Substance: FLUTICASONE PROPIONATE\SALMETEROL XINAFOATE
     Indication: Asthma
     Dosage: TWICE A DAY RESPIRATORY (INHALATION)?
     Route: 055
     Dates: start: 20241223, end: 20250118
  2. ALBUTEROL [Concomitant]
     Active Substance: ALBUTEROL
  3. maca root [Concomitant]

REACTIONS (1)
  - Acute psychosis [None]

NARRATIVE: CASE EVENT DATE: 20250118
